FAERS Safety Report 22146645 (Version 1)
Quarter: 2023Q1

REPORT INFORMATION
  Report Type: Spontaneous
  Country: US (occurrence: None)
  Receive Date: 20230327
  Receipt Date: 20230327
  Transmission Date: 20230417
  Serious: No
  Sender: FDA-Public Use
  Company Number: None

PATIENT
  Age: 35 Year
  Sex: Female
  Weight: 90 kg

DRUGS (6)
  1. MUCUS RELIEF EXTENDED RELEASE MAXIMUM STRENGTH [Suspect]
     Active Substance: GUAIFENESIN
     Indication: Product used for unknown indication
     Dosage: OTHER QUANTITY : 1 TABLET(S);?FREQUENCY : EVERY 12 HOURS;?
     Route: 048
     Dates: start: 20230324, end: 20230324
  2. TIROSINT [Concomitant]
     Active Substance: LEVOTHYROXINE SODIUM
  3. VITAMIN B12 [Concomitant]
     Active Substance: CYANOCOBALAMIN
  4. VITAMIN D [Concomitant]
     Active Substance: VITAMIN D NOS
  5. CETIRIZINE [Concomitant]
     Active Substance: CETIRIZINE HYDROCHLORIDE
  6. Sporadic use of melatonin, not used for 2 weeks [Concomitant]

REACTIONS (8)
  - Palpitations [None]
  - Somnolence [None]
  - Dizziness [None]
  - Nausea [None]
  - Photophobia [None]
  - Headache [None]
  - Impaired driving ability [None]
  - Fatigue [None]

NARRATIVE: CASE EVENT DATE: 20230324
